FAERS Safety Report 13819210 (Version 2)
Quarter: 2018Q1

REPORT INFORMATION
  Report Type: Report from Study
  Country: US (occurrence: US)
  Receive Date: 20170731
  Receipt Date: 20180201
  Transmission Date: 20180508
  Serious: No
  Sender: FDA-Public Use
  Company Number: US-EXELIXIS-CABO-17007913

PATIENT
  Sex: Male
  Weight: 61.22 kg

DRUGS (17)
  1. CALCIUM [Concomitant]
     Active Substance: CALCIUM
  2. VITAMIN B12 [Concomitant]
     Active Substance: CYANOCOBALAMIN
  3. ASPIRIN. [Concomitant]
     Active Substance: ASPIRIN
  4. GEMFIBROZIL. [Concomitant]
     Active Substance: GEMFIBROZIL
  5. PROBIOTIC [Concomitant]
     Active Substance: PROBIOTICS NOS
  6. MULTIVITAMIN [Concomitant]
     Active Substance: VITAMINS
  7. NUCYNTA [Concomitant]
     Active Substance: TAPENTADOL HYDROCHLORIDE
  8. FOLIC ACID. [Concomitant]
     Active Substance: FOLIC ACID
  9. VITAMIN D3 [Concomitant]
     Active Substance: CHOLECALCIFEROL
  10. METHOTREXATE. [Concomitant]
     Active Substance: METHOTREXATE
  11. CABOMETYX [Suspect]
     Active Substance: CABOZANTINIB S-MALATE
     Indication: RENAL CELL CARCINOMA
     Dosage: 40 MG, QD
     Route: 048
     Dates: start: 20161129
  12. FENTANYL. [Concomitant]
     Active Substance: FENTANYL
  13. XGEVA [Concomitant]
     Active Substance: DENOSUMAB
  14. HYDROXYCHLOROQUINE [Concomitant]
     Active Substance: HYDROXYCHLOROQUINE
  15. ATORVASTATIN [Concomitant]
     Active Substance: ATORVASTATIN
  16. LEVEMIR [Concomitant]
     Active Substance: INSULIN DETEMIR
  17. METFORMIN [Concomitant]
     Active Substance: METFORMIN HYDROCHLORIDE

REACTIONS (1)
  - Blood glucose decreased [Unknown]
